FAERS Safety Report 22354611 (Version 1)
Quarter: 2023Q2

REPORT INFORMATION
  Report Type: Spontaneous
  Country: US (occurrence: None)
  Receive Date: 20230522
  Receipt Date: 20230522
  Transmission Date: 20230722
  Serious: Yes (Other)
  Sender: FDA-Public Use
  Company Number: None

PATIENT
  Age: 8 Week
  Sex: Male
  Weight: 6.75 kg

DRUGS (1)
  1. OFLOXACIN OPHTH SOLN [Suspect]
     Active Substance: OFLOXACIN
     Indication: Conjunctivitis
     Dosage: OTHER QUANTITY : 5 ML;?FREQUENCY : 3 TIMES A DAY;?
     Route: 047
     Dates: start: 20230310, end: 20230401

REACTIONS (2)
  - Drug ineffective [None]
  - Recalled product administered [None]

NARRATIVE: CASE EVENT DATE: 20230324
